FAERS Safety Report 11044000 (Version 4)
Quarter: 2015Q2

REPORT INFORMATION
  Report Type: Spontaneous
  Country: US (occurrence: US)
  Receive Date: 20150417
  Receipt Date: 20150528
  Transmission Date: 20150821
  Serious: Yes (Hospitalization, Other)
  Sender: FDA-Public Use
  Company Number: US-NOVOPROD-445875

PATIENT
  Age: 53 Year
  Sex: Female
  Weight: 52.5 kg

DRUGS (4)
  1. LANTUS [Suspect]
     Active Substance: INSULIN GLARGINE
     Indication: TYPE 1 DIABETES MELLITUS
     Dosage: 8 U, BID
     Route: 058
     Dates: start: 2011
  2. NOVOLOG [Suspect]
     Active Substance: INSULIN ASPART
     Dosage: 4 U AS PER SLIDING SCALE
     Route: 058
     Dates: start: 20141204
  3. LANTUS [Suspect]
     Active Substance: INSULIN GLARGINE
     Dosage: 7 U, BID
     Route: 058
     Dates: start: 20141204
  4. NOVOLOG [Suspect]
     Active Substance: INSULIN ASPART
     Indication: TYPE 1 DIABETES MELLITUS
     Dosage: 15 U, QD
     Route: 058
     Dates: start: 2011

REACTIONS (3)
  - Laceration [Recovered/Resolved]
  - Hypoglycaemic seizure [Recovered/Resolved]
  - Hypoglycaemic unconsciousness [Recovered/Resolved]

NARRATIVE: CASE EVENT DATE: 20141204
